FAERS Safety Report 18117241 (Version 1)
Quarter: 2020Q3

REPORT INFORMATION
  Report Type: Spontaneous
  Country: US (occurrence: US)
  Receive Date: 20200805
  Receipt Date: 20200805
  Transmission Date: 20201103
  Serious: Yes (Hospitalization)
  Sender: FDA-Public Use
  Company Number: US-AUROBINDO-AUR-APL-2020-037556

PATIENT
  Age: 49 Year
  Sex: Female

DRUGS (5)
  1. BIVALIRUDIN. [Suspect]
     Active Substance: BIVALIRUDIN
     Dosage: 0.5 MG/KG (50MG TOTAL),
     Route: 040
  2. BIVALIRUDIN. [Suspect]
     Active Substance: BIVALIRUDIN
     Dosage: 2.5 MG/KG/HOUR
     Route: 040
  3. BIVALIRUDIN. [Suspect]
     Active Substance: BIVALIRUDIN
     Indication: PRODUCT USED FOR UNKNOWN INDICATION
     Dosage: 1.5 MILLIGRAM/KILOGRAM (( 150 MG TOTAL) )
     Route: 040
  4. HEPARIN [Suspect]
     Active Substance: HEPARIN SODIUM
     Indication: PRODUCT USED FOR UNKNOWN INDICATION
     Dosage: UNK
     Route: 065
  5. ARGATROBAN. [Suspect]
     Active Substance: ARGATROBAN
     Indication: PRODUCT USED FOR UNKNOWN INDICATION
     Dosage: UNK
     Route: 065

REACTIONS (1)
  - Coagulopathy [Unknown]
